FAERS Safety Report 6644436-7 (Version None)
Quarter: 2010Q1

REPORT INFORMATION
  Report Type: 
  Country: None (occurrence: None)
  Receive Date: 20100322
  Receipt Date: 20100312
  Transmission Date: 20100710
  Serious: Yes (Death)
  Sender: FDA-Public Use
  Company Number: JP-ROCHE-691224

PATIENT
  Age: 66 Year
  Sex: Male

DRUGS (3)
  1. AVASTIN [Suspect]
     Indication: LUNG ADENOCARCINOMA
     Dosage: THERAPY STATUS UNKNOWN AT THE TIME OF DEATH
     Route: 041
     Dates: start: 20100301
  2. CARBOPLATIN [Suspect]
     Indication: LUNG ADENOCARCINOMA
     Dosage: THERAPY STATUS UNKNOWN AT THE TIME OF DEATH
     Route: 041
  3. PACLITAXEL [Suspect]
     Indication: LUNG ADENOCARCINOMA
     Dosage: THERAPY STATUS UNKNOWN AT THE TIME OF DEATH
     Route: 041

REACTIONS (2)
  - FEBRILE NEUTROPENIA [None]
  - SEPSIS [None]
